FAERS Safety Report 11141182 (Version 1)
Quarter: 2015Q2

REPORT INFORMATION
  Report Type: Spontaneous
  Country: US (occurrence: None)
  Receive Date: 20150526
  Receipt Date: 20150526
  Transmission Date: 20150821
  Serious: No
  Sender: FDA-Public Use
  Company Number: None

PATIENT
  Age: 84 Year
  Sex: Female
  Weight: 58.97 kg

DRUGS (11)
  1. TOGRAL [Concomitant]
  2. FISH OIL [Concomitant]
     Active Substance: FISH OIL
  3. XARELTO [Suspect]
     Active Substance: RIVAROXABAN
     Indication: PULMONARY EMBOLISM
     Route: 048
  4. PRAVASHAL [Concomitant]
  5. FOLIC ACID. [Concomitant]
     Active Substance: FOLIC ACID
  6. NITRO PATCH [Concomitant]
     Active Substance: NITROGLYCERIN
  7. TAVEX [Concomitant]
  8. COCL [Concomitant]
  9. DIOVAN [Concomitant]
     Active Substance: VALSARTAN
  10. DITROPAM [Concomitant]
  11. CALCIUM [Concomitant]
     Active Substance: CALCIUM

REACTIONS (3)
  - Conjunctival haemorrhage [None]
  - Headache [None]
  - Pain [None]

NARRATIVE: CASE EVENT DATE: 201411
